FAERS Safety Report 21671464 (Version 3)
Quarter: 2022Q4

REPORT INFORMATION
  Report Type: Other
  Country: US (occurrence: US)
  Receive Date: 20221202
  Receipt Date: 20221219
  Transmission Date: 20230112
  Serious: No
  Sender: FDA-Public Use
  Company Number: US-GBT-015692

PATIENT
  Age: 41 Year
  Sex: Female

DRUGS (1)
  1. OXBRYTA [Suspect]
     Active Substance: VOXELOTOR
     Indication: Sickle cell disease
     Route: 048
     Dates: start: 202208

REACTIONS (4)
  - Glossodynia [Not Recovered/Not Resolved]
  - Abdominal distension [Unknown]
  - Ear pain [Unknown]
  - Gingival pruritus [Unknown]

NARRATIVE: CASE EVENT DATE: 20220801
